FAERS Safety Report 19637902 (Version 1)
Quarter: 2021Q3

REPORT INFORMATION
  Report Type: Spontaneous
  Country: CN (occurrence: CN)
  Receive Date: 20210730
  Receipt Date: 20210730
  Transmission Date: 20211014
  Serious: Yes (Life-Threatening)
  Sender: FDA-Public Use
  Company Number: CN-ASTRAZENECA-2021A646697

PATIENT
  Age: 73 Year
  Sex: Male
  Weight: 50 kg

DRUGS (8)
  1. ALBUTEROL SULFATE. [Suspect]
     Active Substance: ALBUTEROL SULFATE
     Indication: ASTHMA
     Route: 055
     Dates: start: 20210712, end: 20210712
  2. PULMICORT RESPULES [Suspect]
     Active Substance: BUDESONIDE
     Indication: ASTHMA
     Route: 055
     Dates: start: 20210712, end: 20210712
  3. PIPERACILLIN AND TAZOBACTAM [Concomitant]
     Active Substance: PIPERACILLIN SODIUM\TAZOBACTAM SODIUM
     Indication: PNEUMONIA
     Route: 042
     Dates: start: 20210711, end: 20210722
  4. AMIKACIN SULFATE INJECTION [Concomitant]
     Indication: PNEUMONIA
     Route: 042
     Dates: start: 20210712, end: 20210722
  5. PULMICORT RESPULES [Suspect]
     Active Substance: BUDESONIDE
     Indication: INFLAMMATION
     Route: 055
     Dates: start: 20210712, end: 20210712
  6. ALBUTEROL SULFATE. [Suspect]
     Active Substance: ALBUTEROL SULFATE
     Indication: MUSCLE SPASMS
     Route: 055
     Dates: start: 20210712, end: 20210712
  7. BROMHEXINE HYDROCHLORIDE [Suspect]
     Active Substance: BROMHEXINE HYDROCHLORIDE
     Indication: COUGH
     Route: 042
     Dates: start: 20210710, end: 20210712
  8. BROMHEXINE HYDROCHLORIDE [Suspect]
     Active Substance: BROMHEXINE HYDROCHLORIDE
     Indication: PRODUCTIVE COUGH
     Route: 042
     Dates: start: 20210710, end: 20210712

REACTIONS (5)
  - Drug hypersensitivity [Unknown]
  - Dyspnoea [Recovering/Resolving]
  - Chest discomfort [Recovering/Resolving]
  - Confusional state [Unknown]
  - Cyanosis [Unknown]

NARRATIVE: CASE EVENT DATE: 20210712
